FAERS Safety Report 9701801 (Version 1)
Quarter: 2013Q4

REPORT INFORMATION
  Report Type: Spontaneous
  Country: US (occurrence: None)
  Receive Date: 20131120
  Receipt Date: 20131120
  Transmission Date: 20140711
  Serious: No
  Sender: FDA-Public Use
  Company Number: None

PATIENT
  Age: 60 Year
  Sex: Male
  Weight: 93 kg

DRUGS (2)
  1. CARBOPLATIN [Suspect]
  2. PACLITAXEL [Suspect]

REACTIONS (13)
  - Eating disorder [None]
  - Throat irritation [None]
  - Asthenia [None]
  - Fatigue [None]
  - Dizziness [None]
  - Oesophageal pain [None]
  - Productive cough [None]
  - Dysphagia [None]
  - Hypotension [None]
  - Dehydration [None]
  - Nausea [None]
  - Oesophagitis [None]
  - Febrile neutropenia [None]
